FAERS Safety Report 5714598-4 (Version None)
Quarter: 2008Q2

REPORT INFORMATION
  Report Type: 
  Country: None (occurrence: None)
  Receive Date: 20080423
  Receipt Date: 20080414
  Transmission Date: 20081010
  Serious: Yes (Death, Hospitalization)
  Sender: FDA-Public Use
  Company Number: A0722436A

PATIENT
  Age: 19 Year
  Sex: Female

DRUGS (6)
  1. ADVAIR HFA [Suspect]
     Indication: ASTHMA
     Dosage: 1PUFF TWICE PER DAY
     Route: 055
  2. XOPENEX [Concomitant]
  3. QVAR 40 [Concomitant]
  4. ALBUTEROL [Concomitant]
  5. SINGULAIR [Concomitant]
  6. ALBUTEROL [Concomitant]

REACTIONS (5)
  - ASTHMA [None]
  - CARDIAC ARREST [None]
  - PULMONARY EMBOLISM [None]
  - RESPIRATORY FAILURE [None]
  - STATUS ASTHMATICUS [None]
